FAERS Safety Report 9435037 (Version 3)
Quarter: 2013Q4

REPORT INFORMATION
  Report Type: Spontaneous
  Country: CR (occurrence: CR)
  Receive Date: 20130801
  Receipt Date: 20131003
  Transmission Date: 20140711
  Serious: Yes (Other)
  Sender: FDA-Public Use
  Company Number: PHHY2013CR081405

PATIENT
  Sex: Female

DRUGS (1)
  1. ONBREZ [Suspect]

REACTIONS (1)
  - Condition aggravated [Unknown]
